FAERS Safety Report 8581873-8 (Version None)
Quarter: 2012Q3

REPORT INFORMATION
  Report Type: 
  Country: None (occurrence: None)
  Receive Date: 20120809
  Receipt Date: 20120725
  Transmission Date: 20120928
  Serious: Yes (Other)
  Sender: FDA-Public Use
  Company Number: US-CELGENEUS-163-21880-12072964

PATIENT
  Sex: Female
  Weight: 63 kg

DRUGS (26)
  1. DEXAMETHASONE [Suspect]
     Indication: MULTIPLE MYELOMA
     Dosage: 20 MILLIGRAM
     Route: 048
     Dates: start: 20091029, end: 20091124
  2. DEXAMETHASONE [Suspect]
     Dosage: 5.7143 MILLIGRAM
     Route: 065
     Dates: start: 20100301
  3. VELCADE [Concomitant]
     Indication: MULTIPLE MYELOMA
     Dosage: 1.3 MILLIGRAM/SQ. METER
     Route: 058
  4. CYBOR-D [Concomitant]
     Route: 065
     Dates: start: 20100301
  5. ISACALCIUM DRINK [Concomitant]
     Route: 065
  6. MULTI-VITAMINS [Concomitant]
     Route: 048
  7. LORAZEPAM [Concomitant]
     Indication: SLEEP DISORDER
     Dosage: 7.5-325MG
     Route: 048
  8. SORAFENIB [Suspect]
     Indication: MULTIPLE MYELOMA
     Dosage: 200 MILLIGRAM
     Route: 048
     Dates: start: 20091029, end: 20091124
  9. DEXAMETHASONE [Suspect]
     Dosage: 5.7143 MILLIGRAM
     Route: 048
     Dates: start: 20091101
  10. BETA BLOCKER [Concomitant]
     Indication: HYPERTENSION
     Route: 065
  11. ZOMETA [Concomitant]
     Route: 041
  12. ASPIRIN [Concomitant]
     Dosage: 81 MILLIGRAM
     Route: 048
  13. REVLIMID [Suspect]
     Dosage: 10 MILLIGRAM
     Route: 048
     Dates: start: 20091101
  14. CHLORHEXIDINE GLUCONATE [Concomitant]
     Dosage: 15 MILLILITER
  15. FLAX SEED [Concomitant]
     Route: 048
  16. NITROGLYCERIN [Concomitant]
     Dosage: .4 MILLIGRAM
  17. REVLIMID [Suspect]
     Indication: MULTIPLE MYELOMA
     Dosage: 15 MILLIGRAM
     Route: 048
     Dates: start: 20091029, end: 20091124
  18. FEXOFENADINE [Concomitant]
     Dosage: 180 MILLIGRAM
     Route: 048
  19. REVLIMID [Suspect]
     Dosage: 5 MILLIGRAM
     Route: 048
     Dates: start: 20100801
  20. TOPROL-XL [Concomitant]
     Dosage: 50 MILLIGRAM
     Route: 048
  21. HYDROCODONE BITARTRATE + ACETAMINOPHEN [Concomitant]
     Indication: PAIN
     Dosage: 7.5-325MG
     Route: 048
  22. VELCADE [Concomitant]
     Dosage: 2.4 MILLIGRAM/SQ. METER
     Route: 041
  23. NEULASTA [Concomitant]
     Route: 065
  24. VELCADE [Concomitant]
     Dosage: .2143 MILLIGRAM/SQ. METER
     Route: 058
     Dates: start: 20100301
  25. CYCLOPHOSPHAMIDE [Concomitant]
     Dosage: 71.4286 MILLIGRAM
     Route: 065
     Dates: start: 20100301
  26. ACYCLOVIR [Concomitant]
     Dosage: 800 MILLIGRAM
     Route: 048

REACTIONS (1)
  - MYELODYSPLASTIC SYNDROME [None]
